FAERS Safety Report 9171595 (Version 3)
Quarter: 2014Q4

REPORT INFORMATION
  Report Type: Spontaneous
  Country: US (occurrence: US)
  Receive Date: 20130319
  Receipt Date: 20141210
  Transmission Date: 20150529
  Serious: Yes (Hospitalization, Other)
  Sender: FDA-Public Use
  Company Number: US-GLAXOSMITHKLINE-A1016373A

PATIENT
  Sex: Female

DRUGS (6)
  1. FLOLAN [Suspect]
     Active Substance: EPOPROSTENOL SODIUM
     Dosage: 41 NG/KG/MIN (CONCENTRATION 75,000 NG/ML, PUMP RATE 82 ML/DAY, VIAL STRENGTH 1.5), CO
     Route: 042
  2. LETAIRIS [Concomitant]
     Active Substance: AMBRISENTAN
  3. LASIX [Concomitant]
     Active Substance: FUROSEMIDE
  4. FLOLAN [Suspect]
     Active Substance: EPOPROSTENOL SODIUM
     Indication: PULMONARY ARTERIAL HYPERTENSION
     Dosage: 41 NG/KG/MIN CONTINUOUSLY
     Route: 042
     Dates: start: 20061214
  5. ADCIRCA [Concomitant]
     Active Substance: TADALAFIL
  6. TORSEMIDE. [Concomitant]
     Active Substance: TORSEMIDE

REACTIONS (4)
  - Presyncope [Unknown]
  - Dyspnoea [Unknown]
  - Ventricular tachycardia [Unknown]
  - Abdominal distension [Recovering/Resolving]
